FAERS Safety Report 18319180 (Version 1)
Quarter: 2020Q3

REPORT INFORMATION
  Report Type: Spontaneous
  Country: US (occurrence: US)
  Receive Date: 20200928
  Receipt Date: 20200928
  Transmission Date: 20201103
  Serious: Yes (Hospitalization)
  Sender: FDA-Public Use
  Company Number: None

PATIENT
  Age: 83 Year
  Sex: Male
  Weight: 92 kg

DRUGS (7)
  1. ANAKINRA (KINERET [Concomitant]
     Dates: start: 20200710, end: 20200713
  2. ACYCLOVIR (ZOVIRAX) [Concomitant]
     Dates: start: 20200706, end: 20200927
  3. KEPPRA [Concomitant]
     Active Substance: LEVETIRACETAM
     Dates: start: 20200706, end: 20200906
  4. ZOSYN [Concomitant]
     Active Substance: PIPERACILLIN SODIUM\TAZOBACTAM SODIUM
     Dates: start: 20200709, end: 20200713
  5. YESCARTA [Suspect]
     Active Substance: AXICABTAGENE CILOLEUCEL
     Indication: DIFFUSE LARGE B-CELL LYMPHOMA
     Dosage: ?          OTHER FREQUENCY:ONCE;?
     Route: 041
     Dates: start: 20200706, end: 20200706
  6. FILGRASTIM (NEUPOGEN) SYRINGE [Concomitant]
     Dates: start: 20200708, end: 20200712
  7. DECADRON [Concomitant]
     Active Substance: DEXAMETHASONE
     Dates: start: 20200708, end: 20200720

REACTIONS (2)
  - Cytokine release syndrome [None]
  - Neurotoxicity [None]

NARRATIVE: CASE EVENT DATE: 20200706
